FAERS Safety Report 13986426 (Version 1)
Quarter: 2017Q3

REPORT INFORMATION
  Report Type: Spontaneous
  Country: US (occurrence: US)
  Receive Date: 20170919
  Receipt Date: 20170919
  Transmission Date: 20171128
  Serious: Yes (Disabling)
  Sender: FDA-Public Use
  Company Number: None

PATIENT
  Age: 45 Year
  Sex: Female
  Weight: 47.25 kg

DRUGS (7)
  1. FISH OIL [Concomitant]
     Active Substance: FISH OIL
  2. VITAMIN E [Concomitant]
     Active Substance: .ALPHA.-TOCOPHEROL
  3. PROBIOTIC [Concomitant]
     Active Substance: PROBIOTICS NOS
  4. VITAMIN D [Concomitant]
     Active Substance: CHOLECALCIFEROL
  5. LEVOFLOXACIN. [Suspect]
     Active Substance: LEVOFLOXACIN
     Indication: PNEUMONIA
     Dosage: OTHER ROUTE:IV AND ORAL?
     Dates: start: 20160309, end: 20160316
  6. MAGNESIUM [Concomitant]
     Active Substance: MAGNESIUM
  7. VITAMIN C [Concomitant]
     Active Substance: ASCORBIC ACID

REACTIONS (15)
  - Back pain [None]
  - Dyspepsia [None]
  - Chest pain [None]
  - Neuropathy peripheral [None]
  - Joint stiffness [None]
  - Abdominal pain [None]
  - Dizziness [None]
  - Dyspnoea [None]
  - Joint crepitation [None]
  - Loss of consciousness [None]
  - Dysphonia [None]
  - Chest discomfort [None]
  - Retching [None]
  - Arthropathy [None]
  - Weight decreased [None]

NARRATIVE: CASE EVENT DATE: 20160309
